FAERS Safety Report 9843450 (Version 1)
Quarter: 2013Q4

REPORT INFORMATION
  Report Type: Spontaneous
  Country: US (occurrence: None)
  Receive Date: 20131223
  Receipt Date: 20131223
  Transmission Date: 20140711
  Serious: Yes (Other)
  Sender: FDA-Public Use
  Company Number: 222566LEO

PATIENT
  Age: 66 Year
  Sex: Female

DRUGS (1)
  1. PICATO (0.05%, GEL) [Suspect]
     Dosage: 1 IN 1 D
     Route: 061
     Dates: start: 20130704, end: 20130705

REACTIONS (3)
  - Application site irritation [None]
  - Application site pain [None]
  - Application site scab [None]
